FAERS Safety Report 16376783 (Version 1)
Quarter: 2019Q2

REPORT INFORMATION
  Report Type: Spontaneous
  Country: BR (occurrence: BR)
  Receive Date: 20190531
  Receipt Date: 20190531
  Transmission Date: 20190711
  Serious: Yes (Other)
  Sender: FDA-Public Use
  Company Number: BR-ASTRAZENECA-2019SE79938

PATIENT
  Sex: Female

DRUGS (1)
  1. VANNAIR [Suspect]
     Active Substance: BUDESONIDE\FORMOTEROL FUMARATE DIHYDRATE
     Indication: ASTHMA
     Dosage: 2 SPRAYS EVERY FOUR HOURS TWO AND A HALF YEARS AGO
     Route: 055
     Dates: start: 2017

REACTIONS (6)
  - Asthmatic crisis [Unknown]
  - Fatigue [Unknown]
  - Dyspnoea [Unknown]
  - Product administration error [Unknown]
  - Drug ineffective [Unknown]
  - Cough [Unknown]
